FAERS Safety Report 7703050-2 (Version None)
Quarter: 2011Q3

REPORT INFORMATION
  Report Type: 
  Country: None (occurrence: None)
  Receive Date: 20110823
  Receipt Date: 20110808
  Transmission Date: 20111222
  Serious: Yes (Other)
  Sender: FDA-Public Use
  Company Number: US-UCBSA-033863

PATIENT
  Sex: Male

DRUGS (3)
  1. HYDROCODONE [Suspect]
     Indication: PAIN
     Route: 042
     Dates: start: 20110101, end: 20110101
  2. CIMZIA [Suspect]
     Indication: CROHN'S DISEASE
     Route: 058
     Dates: start: 20090121
  3. CIMZIA [Suspect]
     Route: 058

REACTIONS (6)
  - WEIGHT FLUCTUATION [None]
  - NAUSEA [None]
  - FALL [None]
  - DECREASED APPETITE [None]
  - CROHN'S DISEASE [None]
  - STERNAL FRACTURE [None]
